FAERS Safety Report 9095445 (Version 1)
Quarter: 2013Q1

REPORT INFORMATION
  Report Type: Spontaneous
  Country: US (occurrence: US)
  Receive Date: 20130219
  Receipt Date: 20130219
  Transmission Date: 20140127
  Serious: Yes (Other)
  Sender: FDA-Public Use
  Company Number: CHPA2013US002996

PATIENT
  Age: 81 Year
  Sex: Female

DRUGS (3)
  1. BENEFIBER W/ WHEAT DEXTRIN [Suspect]
     Indication: IRRITABLE BOWEL SYNDROME
     Dosage: 2 DF, BID
     Route: 048
  2. BENEFIBER W/ WHEAT DEXTRIN [Suspect]
     Dosage: UNK UNK, QD
     Route: 048
  3. TRAMADOL [Concomitant]
     Dosage: UNK, UNK

REACTIONS (4)
  - Bronchitis [Recovered/Resolved]
  - Sinusitis [Recovered/Resolved]
  - Off label use [Unknown]
  - Abdominal distension [Not Recovered/Not Resolved]
